FAERS Safety Report 20501443 (Version 10)
Quarter: 2024Q1

REPORT INFORMATION
  Report Type: Spontaneous
  Country: CA (occurrence: CA)
  Receive Date: 20220222
  Receipt Date: 20240227
  Transmission Date: 20240410
  Serious: Yes (Other)
  Sender: FDA-Public Use
  Company Number: CA-PFIZER INC-202101374904

PATIENT
  Age: 77 Year
  Sex: Female
  Weight: 56 kg

DRUGS (12)
  1. RUXIENCE [Suspect]
     Active Substance: RITUXIMAB-PVVR
     Indication: Granulomatosis with polyangiitis
     Dosage: 1 G, EVERY 6 MONTHS (RITUXAN SWITCH)
     Route: 042
     Dates: start: 20211028, end: 20220606
  2. RUXIENCE [Suspect]
     Active Substance: RITUXIMAB-PVVR
     Dosage: 500 MG, EVERY 4 MONTH (DAY 1 ONLY)
     Route: 042
     Dates: start: 20221104, end: 20221104
  3. RUXIENCE [Suspect]
     Active Substance: RITUXIMAB-PVVR
     Dosage: 500 MG, EVERY 4 MONTH (DAY 1 ONLY)
     Route: 042
     Dates: start: 20230302, end: 20230302
  4. RUXIENCE [Suspect]
     Active Substance: RITUXIMAB-PVVR
     Dosage: 500 MG, EVERY 4 MONTH
     Route: 042
     Dates: start: 20230628, end: 20230628
  5. RUXIENCE [Suspect]
     Active Substance: RITUXIMAB-PVVR
     Dosage: 500 MG, EVERY 4 MONTH
     Route: 042
     Dates: start: 20231018, end: 20231018
  6. RUXIENCE [Suspect]
     Active Substance: RITUXIMAB-PVVR
     Dosage: 500 MG, EVERY 4 MONTH (500MG AFTER 15 WEEKS AND 4 DAYS)
     Route: 042
     Dates: start: 20240221
  7. ACETAMINOPHEN [Concomitant]
     Active Substance: ACETAMINOPHEN
     Indication: Premedication
     Dosage: 650 MG
     Dates: start: 20231018, end: 20231018
  8. BENADRYL [Concomitant]
     Active Substance: DIPHENHYDRAMINE HYDROCHLORIDE
     Indication: Premedication
     Dosage: 50 MG
     Dates: start: 20231018, end: 20231018
  9. CALCIUM [Concomitant]
     Active Substance: CALCIUM
     Dosage: 1 DF
  10. METHYLPREDNISOLONE [Concomitant]
     Active Substance: METHYLPREDNISOLONE
     Indication: Premedication
     Dosage: 100 MG
     Dates: start: 20231018, end: 20231018
  11. PREDNISONE [Concomitant]
     Active Substance: PREDNISONE
     Dosage: UNK
  12. CHOLECALCIFEROL [Concomitant]
     Active Substance: CHOLECALCIFEROL
     Dosage: 1 DF

REACTIONS (11)
  - Pelvic fracture [Recovering/Resolving]
  - Foot fracture [Not Recovered/Not Resolved]
  - Fall [Unknown]
  - Gait inability [Recovering/Resolving]
  - Pneumonia [Recovered/Resolved]
  - Blood pressure diastolic decreased [Unknown]
  - Fatigue [Not Recovered/Not Resolved]
  - Off label use [Unknown]
  - Off label use [Unknown]
  - Intentional product use issue [Unknown]
  - Incorrect product administration duration [Unknown]

NARRATIVE: CASE EVENT DATE: 20220131
